FAERS Safety Report 17176600 (Version 1)
Quarter: 2019Q4

REPORT INFORMATION
  Report Type: Spontaneous
  Country: JP (occurrence: JP)
  Receive Date: 20191219
  Receipt Date: 20191219
  Transmission Date: 20200122
  Serious: Yes (Hospitalization, Other)
  Sender: FDA-Public Use
  Company Number: JP-AMGEN-JPNSP2019125298

PATIENT
  Age: 70 Year
  Sex: Female

DRUGS (1)
  1. PRALIA [Suspect]
     Active Substance: DENOSUMAB
     Indication: OSTEOPOROSIS
     Dosage: UNK
     Route: 065

REACTIONS (5)
  - Femur fracture [Unknown]
  - Hypercalcaemia [Unknown]
  - Blood calcium decreased [Unknown]
  - Pyelonephritis [Unknown]
  - Parkinson^s disease [Unknown]
